FAERS Safety Report 25701182 (Version 1)
Quarter: 2025Q3

REPORT INFORMATION
  Report Type: Spontaneous
  Country: CN (occurrence: CN)
  Receive Date: 20250819
  Receipt Date: 20250819
  Transmission Date: 20251021
  Serious: Yes (Hospitalization)
  Sender: MYLAN
  Company Number: CN-MYLANLABS-2025M1069412

PATIENT
  Age: 75 Year
  Sex: Female
  Weight: 50 kg

DRUGS (4)
  1. NORVASC [Suspect]
     Active Substance: AMLODIPINE BESYLATE
     Indication: Hypertension
     Dosage: 5 MILLIGRAM, QD
     Dates: start: 20250709, end: 20250714
  2. NORVASC [Suspect]
     Active Substance: AMLODIPINE BESYLATE
     Dosage: 5 MILLIGRAM, QD
     Route: 045
     Dates: start: 20250709, end: 20250714
  3. NORVASC [Suspect]
     Active Substance: AMLODIPINE BESYLATE
     Dosage: 5 MILLIGRAM, QD
     Route: 045
     Dates: start: 20250709, end: 20250714
  4. NORVASC [Suspect]
     Active Substance: AMLODIPINE BESYLATE
     Dosage: 5 MILLIGRAM, QD
     Dates: start: 20250709, end: 20250714

REACTIONS (2)
  - Hepatic function abnormal [Recovering/Resolving]
  - Incorrect route of product administration [Unknown]

NARRATIVE: CASE EVENT DATE: 20250711
